FAERS Safety Report 8539661-4 (Version None)
Quarter: 2012Q3

REPORT INFORMATION
  Report Type: 
  Country: None (occurrence: None)
  Receive Date: 20120726
  Receipt Date: 20110720
  Transmission Date: 20120928
  Serious: No
  Sender: FDA-Public Use
  Company Number: US-ASTRAZENECA-2009UW11456

PATIENT
  Sex: Female
  Weight: 90.7 kg

DRUGS (9)
  1. SEROQUEL [Suspect]
     Route: 048
     Dates: start: 20041006, end: 20070101
  2. MIRTAZAPINE [Concomitant]
     Dosage: 30-45 MG
     Dates: start: 20040101, end: 20050101
  3. PROZAC [Concomitant]
     Dates: start: 19980101
  4. AMITRIPTYLINE HYDROCHLORIDE [Concomitant]
     Dosage: 25-50 MG
     Dates: start: 20060101, end: 20070101
  5. LORAZEPAM [Concomitant]
     Dates: start: 20040930
  6. SERTRALINE HYDROCHLORIDE [Concomitant]
     Dates: start: 20041002
  7. TRAZODONE HCL [Concomitant]
     Dates: start: 20041002
  8. ENALAPRIL MALEATE [Concomitant]
     Dates: start: 20041002
  9. SEROQUEL [Suspect]
     Indication: DEPRESSION
     Dosage: 25 MG TO 100 MG
     Route: 048
     Dates: start: 20041002

REACTIONS (2)
  - TYPE 2 DIABETES MELLITUS [None]
  - OBESITY [None]
